FAERS Safety Report 23228409 (Version 1)
Quarter: 2023Q4

REPORT INFORMATION
  Report Type: Spontaneous
  Country: US (occurrence: US)
  Receive Date: 20231125
  Receipt Date: 20231125
  Transmission Date: 20240110
  Serious: Yes (Other)
  Sender: FDA-Public Use
  Company Number: US-BAYER-2023A164463

PATIENT
  Age: 76 Year
  Sex: Female

DRUGS (9)
  1. MIRALAX [Suspect]
     Active Substance: POLYETHYLENE GLYCOL 3350
     Indication: Product used for unknown indication
     Dosage: UNKNOWN
     Route: 065
  2. JAKAFI [Suspect]
     Active Substance: RUXOLITINIB
     Indication: Myeloproliferative neoplasm
     Dosage: 5 MG, BID
     Route: 048
  3. CARVEDILOL [Concomitant]
     Active Substance: CARVEDILOL
  4. VITAMINS [Concomitant]
     Active Substance: VITAMINS
  5. BLADDER CRANBERRY [Concomitant]
  6. LEVOTHYROXINE SODIUM [Concomitant]
     Active Substance: LEVOTHYROXINE SODIUM
  7. OXYBUTYNIN CHLORIDE [Concomitant]
     Active Substance: OXYBUTYNIN CHLORIDE
  8. PROLIA [Concomitant]
     Active Substance: DENOSUMAB
  9. VITAMIN D NOS [Concomitant]
     Active Substance: VITAMIN D NOS

REACTIONS (6)
  - Inappropriate antidiuretic hormone secretion [None]
  - Nausea [Unknown]
  - Fatigue [None]
  - Pain [None]
  - Malaise [None]
  - Urinary tract disorder [None]

NARRATIVE: CASE EVENT DATE: 20230901
